FAERS Safety Report 5669850-8 (Version None)
Quarter: 2008Q1

REPORT INFORMATION
  Report Type: 
  Country: None (occurrence: None)
  Receive Date: 20080317
  Receipt Date: 20080306
  Transmission Date: 20080703
  Serious: Yes (Hospitalization, Other)
  Sender: FDA-Public Use
  Company Number: US-PFIZER INC-2007101397

PATIENT
  Sex: Female
  Weight: 72.727 kg

DRUGS (3)
  1. DILANTIN [Suspect]
     Indication: CONVULSION
     Route: 048
  2. HEPARIN [Suspect]
     Dates: start: 20030101, end: 20030101
  3. KLONOPIN [Concomitant]

REACTIONS (21)
  - ABDOMINAL PAIN UPPER [None]
  - BURN OESOPHAGEAL [None]
  - CHEST PAIN [None]
  - DIZZINESS [None]
  - DRUG HYPERSENSITIVITY [None]
  - DYSPNOEA [None]
  - EUPHORIC MOOD [None]
  - EYE PRURITUS [None]
  - FATIGUE [None]
  - HEAD DISCOMFORT [None]
  - HEADACHE [None]
  - HYPOAESTHESIA ORAL [None]
  - LOSS OF CONSCIOUSNESS [None]
  - MALAISE [None]
  - PARAESTHESIA ORAL [None]
  - RASH [None]
  - RHINORRHOEA [None]
  - SKIN BURNING SENSATION [None]
  - THYROID DISORDER [None]
  - THYROTOXIC CRISIS [None]
  - WEIGHT DECREASED [None]
